FAERS Safety Report 10239413 (Version 2)
Quarter: 2014Q3

REPORT INFORMATION
  Report Type: Spontaneous
  Country: US (occurrence: None)
  Receive Date: 20140612
  Receipt Date: 20140703
  Transmission Date: 20150326
  Serious: Yes (Other)
  Sender: FDA-Public Use
  Company Number: UNT-2014-001508

PATIENT
  Age: 67 Year
  Sex: Female
  Weight: 84.8 kg

DRUGS (2)
  1. REVATIO [Concomitant]
     Active Substance: SILDENAFIL CITRATE
  2. REMODULIN [Suspect]
     Active Substance: TREPROSTINIL
     Indication: PULMONARY ARTERIAL HYPERTENSION
     Dosage: 0.070 ?G/KG/MIN, CONTINUING, IV DRIP
     Route: 041
     Dates: start: 20110404

REACTIONS (2)
  - Abasia [None]
  - Arthralgia [None]
